FAERS Safety Report 17517098 (Version 1)
Quarter: 2020Q1

REPORT INFORMATION
  Report Type: Spontaneous
  Country: US (occurrence: US)
  Receive Date: 20200307
  Receipt Date: 20200307
  Transmission Date: 20200409
  Serious: No
  Sender: FDA-Public Use
  Company Number: None

PATIENT
  Age: 42 Year
  Sex: Female
  Weight: 75.6 kg

DRUGS (8)
  1. AZALASTINE [Concomitant]
  2. HYDROCORTISONE CREAM PRN [Concomitant]
  3. SOLOSEC [Suspect]
     Active Substance: SECNIDAZOLE
     Indication: BACTERIAL VAGINOSIS
     Dosage: ?          QUANTITY:1 2G ORAL GRANULES;OTHER FREQUENCY:1 DOSE;?
     Route: 048
  4. LOSARTAN. [Concomitant]
     Active Substance: LOSARTAN
  5. NASACORT [Concomitant]
     Active Substance: TRIAMCINOLONE ACETONIDE
  6. TYLENOL [Concomitant]
     Active Substance: ACETAMINOPHEN
  7. TUMS [Concomitant]
     Active Substance: CALCIUM CARBONATE
  8. ADVIL [Concomitant]
     Active Substance: IBUPROFEN

REACTIONS (10)
  - Abdominal pain upper [None]
  - Headache [None]
  - Hyperhidrosis [None]
  - Abdominal pain [None]
  - Dyspepsia [None]
  - Back pain [None]
  - Pain [None]
  - Dysgeusia [None]
  - Nausea [None]
  - Fatigue [None]

NARRATIVE: CASE EVENT DATE: 20200228
